FAERS Safety Report 9090241 (Version 1)
Quarter: 2013Q1

REPORT INFORMATION
  Report Type: Report from Study
  Country: US (occurrence: US)
  Receive Date: 20130201
  Receipt Date: 20130201
  Transmission Date: 20140127
  Serious: No
  Sender: FDA-Public Use
  Company Number: US-ABBOTT-12P-163-1022955-00

PATIENT
  Age: 73 Year
  Sex: Female

DRUGS (10)
  1. HUMIRA [Suspect]
     Indication: RHEUMATOID ARTHRITIS
     Route: 058
     Dates: start: 20121130
  2. METHOTREXATE [Concomitant]
     Indication: PRODUCT USED FOR UNKNOWN INDICATION
     Dosage: 10 TABLETS WEEKLY
  3. LISINOPRIL HCTZ [Concomitant]
     Indication: BLOOD PRESSURE
  4. BUSPIRONE [Concomitant]
     Indication: STRESS
  5. FOLIC ACID [Concomitant]
     Indication: PRODUCT USED FOR UNKNOWN INDICATION
  6. SINGULAIR [Concomitant]
     Indication: HYPERSENSITIVITY
  7. SINGULAIR [Concomitant]
     Indication: COUGH
  8. PLAQUENIL [Concomitant]
     Indication: SJOGREN^S SYNDROME
  9. UNKNOWN MEDICATON [Concomitant]
     Indication: OSTEOPOROSIS
  10. TRAMADOL [Concomitant]
     Indication: PRODUCT USED FOR UNKNOWN INDICATION

REACTIONS (4)
  - Cough [Not Recovered/Not Resolved]
  - Oropharyngeal pain [Not Recovered/Not Resolved]
  - Headache [Not Recovered/Not Resolved]
  - Headache [Not Recovered/Not Resolved]
